FAERS Safety Report 15114450 (Version 1)
Quarter: 2018Q2

REPORT INFORMATION
  Report Type: Spontaneous
  Country: US (occurrence: US)
  Receive Date: 20180612
  Receipt Date: 20180612
  Transmission Date: 20180711
  Serious: No
  Sender: FDA-Public Use
  Company Number: None

PATIENT
  Age: 67 Year
  Sex: Female
  Weight: 41.73 kg

DRUGS (10)
  1. CALICUM [Concomitant]
  2. COLACE [Concomitant]
     Active Substance: DOCUSATE SODIUM
  3. TEA [Concomitant]
     Active Substance: TEA LEAF
  4. ZYRTEC [Concomitant]
     Active Substance: CETIRIZINE HYDROCHLORIDE
  5. ALLERGY SHOTS [Concomitant]
     Active Substance: UNSPECIFIED INGREDIENT
  6. MOTRIN [Concomitant]
     Active Substance: IBUPROFEN
  7. D3 2000 VITAMAN [Concomitant]
  8. DIAZEPAM. [Concomitant]
     Active Substance: DIAZEPAM
  9. PROLIA [Suspect]
     Active Substance: DENOSUMAB
     Indication: OSTEOPOROSIS
     Dates: start: 20171101
  10. MIRALAX [Concomitant]
     Active Substance: POLYETHYLENE GLYCOL 3350

REACTIONS (5)
  - Pruritus [None]
  - Pain [None]
  - Facial pain [None]
  - Bone pain [None]
  - Deafness unilateral [None]

NARRATIVE: CASE EVENT DATE: 20171102
